FAERS Safety Report 21313937 (Version 2)
Quarter: 2022Q4

REPORT INFORMATION
  Report Type: Spontaneous
  Country: DE (occurrence: DE)
  Receive Date: 20220909
  Receipt Date: 20221004
  Transmission Date: 20230112
  Serious: Yes (Other)
  Sender: FDA-Public Use
  Company Number: DE-ASTELLAS-2022US031896

PATIENT
  Age: 63 Year
  Sex: Female

DRUGS (2)
  1. ENFORTUMAB VEDOTIN [Suspect]
     Active Substance: ENFORTUMAB VEDOTIN
     Indication: Product used for unknown indication
     Dosage: UNK UNK, UNKNOWN FREQ. (REPORTED AS 125 MG OR ML)
     Route: 065
     Dates: start: 20211008
  2. ENFORTUMAB VEDOTIN [Suspect]
     Active Substance: ENFORTUMAB VEDOTIN
     Dosage: UNK UNK, UNKNOWN FREQ. (REPORTED AS 100 MG OR ML)
     Route: 065

REACTIONS (6)
  - Fall [Unknown]
  - Gait inability [Unknown]
  - Hypoaesthesia [Unknown]
  - Nerve degeneration [Unknown]
  - Mobility decreased [Unknown]
  - Polyneuropathy [Unknown]
